FAERS Safety Report 19394603 (Version 2)
Quarter: 2021Q3

REPORT INFORMATION
  Report Type: Spontaneous
  Country: FR (occurrence: FR)
  Receive Date: 20210609
  Receipt Date: 20210916
  Transmission Date: 20211014
  Serious: Yes (Other)
  Sender: FDA-Public Use
  Company Number: FR-MYLANLABS-2021M1033190

PATIENT
  Age: 65 Year
  Sex: Male

DRUGS (7)
  1. INGENOL MEBUTATE. [Suspect]
     Active Substance: INGENOL MEBUTATE
     Dosage: UNK (TWO COURSES)
     Route: 061
  2. FLUOROURACIL. [Suspect]
     Active Substance: FLUOROURACIL
     Indication: SKIN PAPILLOMA
     Dosage: UNK
  3. FLUOROURACIL. [Suspect]
     Active Substance: FLUOROURACIL
     Dosage: UNK
     Route: 061
  4. IMIQUIMOD. [Suspect]
     Active Substance: IMIQUIMOD
     Indication: SKIN PAPILLOMA
     Dosage: UNK
  5. IMIQUIMOD. [Suspect]
     Active Substance: IMIQUIMOD
     Dosage: UNK (TWO COURSES)
     Route: 061
  6. INGENOL MEBUTATE. [Suspect]
     Active Substance: INGENOL MEBUTATE
     Indication: SKIN PAPILLOMA
     Dosage: UNK
  7. RUXOLITINIB [Concomitant]
     Active Substance: RUXOLITINIB
     Indication: CHRONIC GRAFT VERSUS HOST DISEASE
     Dosage: 10 MILLIGRAM
     Route: 065

REACTIONS (1)
  - Graft versus host disease in skin [Recovered/Resolved]
